FAERS Safety Report 7382708-1 (Version None)
Quarter: 2011Q1

REPORT INFORMATION
  Report Type: 
  Country: None (occurrence: None)
  Receive Date: 20110330
  Receipt Date: 20110321
  Transmission Date: 20110831
  Serious: Yes (Other)
  Sender: FDA-Public Use
  Company Number: US-BIOGENIDEC-2007BI002247

PATIENT
  Sex: Female

DRUGS (2)
  1. AVONEX [Suspect]
     Route: 030
     Dates: start: 20060201
  2. AVONEX [Suspect]
     Indication: MULTIPLE SCLEROSIS
     Route: 030
     Dates: start: 20050701, end: 20050901

REACTIONS (8)
  - CROHN'S DISEASE [None]
  - FATIGUE [None]
  - INFLUENZA LIKE ILLNESS [None]
  - CONVULSION [None]
  - OPTIC NEURITIS [None]
  - SKIN DISORDER [None]
  - BIPOLAR DISORDER [None]
  - HIDRADENITIS [None]
